FAERS Safety Report 9172857 (Version 2)
Quarter: 2013Q4

REPORT INFORMATION
  Report Type: Spontaneous
  Country: CH (occurrence: CH)
  Receive Date: 20120911
  Receipt Date: 20131031
  Transmission Date: 20140711
  Serious: Yes (Hospitalization)
  Sender: FDA-Public Use
  Company Number: CH-MERCK-1209CHE002122

PATIENT
  Age: 66 Year
  Sex: Female

DRUGS (4)
  1. EZETROL [Suspect]
     Indication: HYPERLIPIDAEMIA
     Dosage: 10 MG, QD
     Route: 048
     Dates: end: 201204
  2. LAMICTAL [Suspect]
     Indication: GRAND MAL CONVULSION
     Dosage: 100 MG, BID
     Route: 048
     Dates: start: 201005, end: 201204
  3. SORTIS [Suspect]
     Indication: HYPERLIPIDAEMIA
     Dosage: 10 MG, QD
     Route: 048
     Dates: end: 201204
  4. CEDUR [Suspect]
     Indication: HYPERLIPIDAEMIA
     Dosage: 400 MG, QD
     Route: 048
     Dates: end: 201204

REACTIONS (1)
  - Liver injury [Recovering/Resolving]
